FAERS Safety Report 14891554 (Version 1)
Quarter: 2018Q2

REPORT INFORMATION
  Report Type: Spontaneous
  Country: US (occurrence: US)
  Receive Date: 20180426
  Receipt Date: 20180426
  Transmission Date: 20180711
  Serious: Yes (Other)
  Sender: FDA-Public Use
  Company Number: None

PATIENT
  Age: 47 Year
  Sex: Female
  Weight: 57.6 kg

DRUGS (11)
  1. DEXTROAMPHET SACCHARAT, AMPHET ASPARTATE, DEXTROAMPHET SULFATE AND AMPHET SULFAT [Suspect]
     Active Substance: AMPHETAMINE ASPARTATE\AMPHETAMINE SULFATE\DEXTROAMPHETAMINE SACCHARATE\DEXTROAMPHETAMINE SULFATE
     Indication: ATTENTION DEFICIT/HYPERACTIVITY DISORDER
     Dosage: ?          QUANTITY:30 CAPSULE(S);?
     Route: 048
     Dates: start: 20180111, end: 20180412
  2. LYSINE [Concomitant]
     Active Substance: LYSINE
  3. CLONOPIN [Concomitant]
     Active Substance: CLONAZEPAM
  4. VITAMIN C [Concomitant]
     Active Substance: ASCORBIC ACID
  5. EFFEXOR [Concomitant]
     Active Substance: VENLAFAXINE HYDROCHLORIDE
  6. VALACYCLOVIR [Concomitant]
     Active Substance: VALACYCLOVIR HYDROCHLORIDE
  7. RIZATRIPTAN. [Concomitant]
     Active Substance: RIZATRIPTAN
  8. VITAMINS [Concomitant]
     Active Substance: VITAMINS
  9. ADVIL [Concomitant]
     Active Substance: IBUPROFEN
  10. ZOLPIDEM [Concomitant]
     Active Substance: ZOLPIDEM\ZOLPIDEM TARTRATE
  11. GABAPENTIN. [Concomitant]
     Active Substance: GABAPENTIN

REACTIONS (12)
  - Pain of skin [None]
  - Fatigue [None]
  - Wound secretion [None]
  - Dry mouth [None]
  - Scab [None]
  - Headache [None]
  - Depression [None]
  - Product formulation issue [None]
  - Skin haemorrhage [None]
  - Product substitution issue [None]
  - Skin disorder [None]
  - Nausea [None]

NARRATIVE: CASE EVENT DATE: 20180112
